FAERS Safety Report 16297458 (Version 5)
Quarter: 2019Q4

REPORT INFORMATION
  Report Type: Spontaneous
  Country: US (occurrence: US)
  Receive Date: 20190510
  Receipt Date: 20191213
  Transmission Date: 20200122
  Serious: Yes (Other)
  Sender: FDA-Public Use
  Company Number: US-PFIZER INC-2019196929

PATIENT
  Age: 51 Year
  Sex: Female

DRUGS (1)
  1. IBRANCE [Suspect]
     Active Substance: PALBOCICLIB
     Indication: BREAST CANCER FEMALE
     Dosage: 100 MG, UNK
     Dates: end: 2019

REACTIONS (6)
  - Fatigue [Unknown]
  - Back pain [Unknown]
  - Myocardial infarction [Unknown]
  - Gallbladder disorder [Unknown]
  - Hepatic pain [Unknown]
  - Dyspnoea [Unknown]
